FAERS Safety Report 24647454 (Version 1)
Quarter: 2024Q4

REPORT INFORMATION
  Report Type: Spontaneous
  Country: US (occurrence: US)
  Receive Date: 20241121
  Receipt Date: 20241121
  Transmission Date: 20250115
  Serious: Yes (Other)
  Sender: AMERICAN REGENT
  Company Number: US-AMERICAN REGENT INC-2024004222

PATIENT
  Age: 20 Year
  Sex: Female

DRUGS (8)
  1. EPINEPHRINE [Suspect]
     Active Substance: EPINEPHRINE
     Indication: Hypotension
     Dosage: 1 ?G/MIN
     Route: 065
  2. EPINEPHRINE [Suspect]
     Active Substance: EPINEPHRINE
     Dosage: 0.5 ?G/MIN, WITH UP-TITRATION EVERY TWO MINUTES WITH DOSE INCREASED TO 1?G/MIN, 2?G/MIN, 3?G/MIN, 4
     Route: 065
  3. EPINEPHRINE [Suspect]
     Active Substance: EPINEPHRINE
     Dosage: 1 ?G/MIN
     Route: 065
  4. EPINEPHRINE [Suspect]
     Active Substance: EPINEPHRINE
     Dosage: LOW DOSE 2?G/MIN (TO MAINTAIN MAP }60 MMHG) THEN WEANED OFF
     Route: 065
  5. NOREPINEPHRINE [Suspect]
     Active Substance: NOREPINEPHRINE\NOREPINEPHRINE BITARTRATE
     Indication: Hypotension
     Dosage: 4 MICROGRAMS PER MINUTE
     Route: 065
  6. NOREPINEPHRINE [Suspect]
     Active Substance: NOREPINEPHRINE\NOREPINEPHRINE BITARTRATE
     Dosage: 4 MICROGRAMS PER MINUTE
     Route: 065
  7. Isoproterenol Hydrochloride Injection, USP [Concomitant]
     Indication: Bradycardia
     Dosage: 1 ?G/MIN
     Route: 065
  8. Isoproterenol Hydrochloride Injection, USP [Concomitant]
     Dosage: UNK; WEANED OFF
     Route: 065

REACTIONS (2)
  - Bradycardia [Recovered/Resolved]
  - Product use in unapproved indication [Recovered/Resolved]
